FAERS Safety Report 10187368 (Version 1)
Quarter: 2014Q2

REPORT INFORMATION
  Report Type: Spontaneous
  Country: US (occurrence: None)
  Receive Date: 20140520
  Receipt Date: 20140520
  Transmission Date: 20141212
  Serious: Yes (Hospitalization)
  Sender: FDA-Public Use
  Company Number: IPC201405-000222

PATIENT
  Age: 62 Year
  Sex: Male

DRUGS (13)
  1. TRAMADOL (TRAMADOL) [Suspect]
     Indication: PAIN
     Route: 048
  2. OXYCODONE (OXYCODONE) [Suspect]
     Indication: PAIN
     Dosage: PRN
     Route: 048
  3. TRAZODONE (TRAZODONE) [Suspect]
     Indication: INSOMNIA
     Dosage: EVERY NIGHT
     Route: 048
  4. BUPROPION (BUPROPION) [Suspect]
     Indication: DEPRESSION
     Route: 048
  5. VITAMIN D (VITAMIN D) [Concomitant]
  6. FOLATE (FOLATE) [Concomitant]
  7. THIAMINE (THIAMINE) [Concomitant]
  8. HEPARIN (HEPARIN) [Concomitant]
  9. RANITIDINE (RANITIDINE) [Concomitant]
  10. DOCUSATE (DIOCTYL SODIUM SULFOSUCCINATE) [Concomitant]
  11. ACETAMINOPHEN (ACETAMINOPHEN) [Concomitant]
  12. POLYETHYLENE GLUCOL (POLYETHYLENE GLUCOL) [Concomitant]
  13. CALCIUM/VITAMIN D (CALCIUM, VITAMIN D) [Concomitant]

REACTIONS (13)
  - Serotonin syndrome [None]
  - Drug interaction [None]
  - Drug level increased [None]
  - Alcohol withdrawal syndrome [None]
  - Drug ineffective [None]
  - Urinary incontinence [None]
  - Hypertension [None]
  - Tachycardia [None]
  - Tachypnoea [None]
  - Leukocytosis [None]
  - Hyponatraemia [None]
  - Blood creatine phosphokinase increased [None]
  - Blood urea increased [None]
